FAERS Safety Report 19855748 (Version 1)
Quarter: 2021Q3

REPORT INFORMATION
  Report Type: Spontaneous
  Country: US (occurrence: US)
  Receive Date: 20210920
  Receipt Date: 20210920
  Transmission Date: 20211014
  Serious: Yes (Other)
  Sender: FDA-Public Use
  Company Number: US-ENDO PHARMACEUTICALS INC-2021-011676

PATIENT
  Sex: Male

DRUGS (1)
  1. PRAZIQUANTEL. [Suspect]
     Active Substance: PRAZIQUANTEL
     Indication: PRODUCT USED FOR UNKNOWN INDICATION
     Dosage: TAKING FOR 8 MONTHS
     Route: 065
     Dates: start: 2020

REACTIONS (2)
  - Infection parasitic [Unknown]
  - Pathogen resistance [Unknown]
